FAERS Safety Report 9810178 (Version 1)
Quarter: 2014Q1

REPORT INFORMATION
  Report Type: Spontaneous
  Country: US (occurrence: US)
  Receive Date: 20140110
  Receipt Date: 20140110
  Transmission Date: 20141002
  Serious: Yes (Other)
  Sender: FDA-Public Use
  Company Number: US-SANOFI-AVENTIS-2013SA072444

PATIENT
  Sex: Female

DRUGS (21)
  1. PLAVIX [Suspect]
     Route: 065
  2. COUMADIN [Suspect]
     Route: 065
  3. BIOTIN [Concomitant]
     Route: 065
  4. CARVEDILOL [Concomitant]
     Route: 065
  5. DIPHENHYDRAMINE HYDROCHLORIDE [Concomitant]
     Route: 065
  6. FOLIC ACID [Concomitant]
     Route: 065
  7. HYDROCHLOROTHIAZIDE [Concomitant]
     Route: 065
  8. LIPITOR [Concomitant]
     Dosage: FREQUENCY:3X/WEEKLY
     Route: 065
  9. LISINOPRIL [Concomitant]
     Dosage: 20
     Route: 065
  10. OCUVITE [Concomitant]
     Route: 065
  11. MECLIZINE [Concomitant]
     Indication: DIZZINESS
     Route: 065
  12. MECLIZINE [Concomitant]
     Indication: VERTIGO
     Route: 065
  13. MUCINEX [Concomitant]
     Indication: SINUS OPERATION
     Route: 065
  14. NIACIN [Concomitant]
     Dosage: FREQUENCY:-QHS
     Route: 065
  15. VITAMIN D [Concomitant]
     Route: 065
  16. ZINC [Concomitant]
     Route: 065
  17. MVI [Concomitant]
     Route: 065
  18. FESOTERODINE [Concomitant]
     Route: 065
  19. ALL OTHER THERAPEUTIC PRODUCTS [Concomitant]
     Dosage: FRQUENCY:-QHS
     Route: 065
  20. ASPIRIN [Concomitant]
     Route: 065
  21. B COMPLEX [Concomitant]

REACTIONS (4)
  - Haemorrhage [Unknown]
  - Cerebrovascular accident [Unknown]
  - Pain [Unknown]
  - Constipation [Recovered/Resolved]
